FAERS Safety Report 10978852 (Version 1)
Quarter: 2015Q2

REPORT INFORMATION
  Report Type: Spontaneous
  Country: US (occurrence: US)
  Receive Date: 20150402
  Receipt Date: 20150402
  Transmission Date: 20150821
  Serious: Yes (Death)
  Sender: FDA-Public Use
  Company Number: US-ELI_LILLY_AND_COMPANY-US201503010354

PATIENT

DRUGS (5)
  1. GEMCITABINE HYDROCHLORIDE. [Suspect]
     Active Substance: GEMCITABINE HYDROCHLORIDE
     Indication: NON-SMALL CELL LUNG CANCER
     Dosage: UNK, UNKNOWN
     Route: 065
  2. TIVANTINIB [Concomitant]
     Active Substance: TIVANTINIB
     Indication: K-RAS GENE MUTATION
     Dosage: UNK, UNKNOWN
     Route: 065
  3. ERLOTINIB [Concomitant]
     Active Substance: ERLOTINIB
     Indication: K-RAS GENE MUTATION
     Dosage: UNK, UNKNOWN
     Route: 065
  4. ERLOTINIB [Concomitant]
     Active Substance: ERLOTINIB
     Indication: NON-SMALL CELL LUNG CANCER METASTATIC
  5. TIVANTINIB [Concomitant]
     Active Substance: TIVANTINIB
     Indication: NON-SMALL CELL LUNG CANCER METASTATIC

REACTIONS (1)
  - Death [Fatal]
